FAERS Safety Report 11456061 (Version 3)
Quarter: 2015Q4

REPORT INFORMATION
  Report Type: Spontaneous
  Country: JP (occurrence: JP)
  Receive Date: 20150903
  Receipt Date: 20151030
  Transmission Date: 20160304
  Serious: Yes (Other)
  Sender: FDA-Public Use
  Company Number: JP-PFIZER INC-2015179446

PATIENT
  Age: 77 Year
  Sex: Male

DRUGS (11)
  1. LYRICA [Suspect]
     Active Substance: PREGABALIN
     Dosage: 75 MG, 2X/DAY
     Route: 048
     Dates: start: 20150416, end: 20150430
  2. OPALMON [Concomitant]
     Active Substance: LIMAPROST
     Dosage: 5 ?G, 3X/DAY
     Route: 048
  3. TEPRENONE [Concomitant]
     Active Substance: TEPRENONE
     Dosage: 50 MG, 3X/DAY
     Route: 048
  4. LYRICA [Suspect]
     Active Substance: PREGABALIN
     Dosage: 150 MG, 2X/DAY
     Route: 048
     Dates: start: 20150501
  5. AVOLVE [Concomitant]
     Active Substance: DUTASTERIDE
     Dosage: UNK
     Route: 048
  6. LORCAM [Concomitant]
     Active Substance: LORNOXICAM
     Dosage: 4 MG, 3X/DAY
     Route: 048
  7. PLAVIX [Concomitant]
     Active Substance: CLOPIDOGREL BISULFATE
     Dosage: UNK
     Route: 048
  8. URIEF [Concomitant]
     Active Substance: SILODOSIN
     Dosage: UNK
     Route: 048
  9. URITOS [Concomitant]
     Active Substance: IMIDAFENACIN
     Dosage: UNK
     Route: 048
  10. TRAMAL [Suspect]
     Active Substance: TRAMADOL
     Dosage: 25 MG, 4X/DAY
     Route: 048
     Dates: start: 20150515, end: 20150520
  11. DONEPEZIL HCL [Concomitant]
     Active Substance: DONEPEZIL HYDROCHLORIDE
     Dosage: UNK
     Route: 048

REACTIONS (3)
  - Vision blurred [Recovered/Resolved]
  - Amnesia [Recovered/Resolved]
  - Dementia [Recovered/Resolved]

NARRATIVE: CASE EVENT DATE: 20150516
